FAERS Safety Report 5911576-7 (Version None)
Quarter: 2008Q4

REPORT INFORMATION
  Report Type: 
  Country: None (occurrence: None)
  Receive Date: 20081003
  Receipt Date: 20080919
  Transmission Date: 20090506
  Serious: Yes (Other)
  Sender: FDA-Public Use
  Company Number: 1000001116

PATIENT
  Age: 54 Year
  Sex: Male

DRUGS (1)
  1. ESCITALOPRAM [Suspect]
     Indication: DEPRESSION
     Dosage: 20 MG (20 MG, 1 IN 1 D), ORAL
     Route: 048
     Dates: start: 20080701

REACTIONS (4)
  - FALL [None]
  - HEAD INJURY [None]
  - TRANSIENT ISCHAEMIC ATTACK [None]
  - VERTIGO [None]
